FAERS Safety Report 25223579 (Version 2)
Quarter: 2025Q2

REPORT INFORMATION
  Report Type: Spontaneous
  Country: US (occurrence: US)
  Receive Date: 20250422
  Receipt Date: 20250618
  Transmission Date: 20250717
  Serious: Yes (Other)
  Sender: SANDOZ
  Company Number: US-SANDOZ-SDZ2025US024430

PATIENT
  Age: 77 Year
  Sex: Female

DRUGS (15)
  1. ALLOPURINOL [Suspect]
     Active Substance: ALLOPURINOL
     Dosage: ANASTROZOLE ORAL 1 MG TABLET 1 TABLET ORALLY EVERY DAY.,
     Route: 048
  2. ALLOPURINOL [Suspect]
     Active Substance: ALLOPURINOL
     Indication: Product used for unknown indication
     Dosage: 300 MG, QD
     Route: 048
  3. ANASTROZOLE [Suspect]
     Active Substance: ANASTROZOLE
     Indication: Breast cancer
     Route: 065
     Dates: start: 20241205
  4. DENOSUMAB [Suspect]
     Active Substance: DENOSUMAB
     Indication: Product used for unknown indication
     Route: 065
  5. FUROSEMIDE [Suspect]
     Active Substance: FUROSEMIDE
     Indication: Product used for unknown indication
     Dosage: 20 MG, QD (FURCSEMIDE ORAL 20 MG TABLET PO QD)
     Route: 048
  6. IBRANCE [Suspect]
     Active Substance: PALBOCICLIB
     Dosage: 100 MG, QD,(RESTARTED PLABOCICLIB AT 100 MG DAILY DOSE)
     Route: 065
     Dates: start: 20231203, end: 20231214
  7. IBRANCE [Suspect]
     Active Substance: PALBOCICLIB
     Route: 065
     Dates: start: 20240107
  8. IBRANCE [Suspect]
     Active Substance: PALBOCICLIB
     Indication: Product used for unknown indication
     Route: 048
     Dates: start: 20230917, end: 20231007
  9. LETROZOLE [Suspect]
     Active Substance: LETROZOLE
     Indication: Product used for unknown indication
     Route: 065
  10. LEVOTHYROXINE SODIUM [Suspect]
     Active Substance: LEVOTHYROXINE SODIUM
     Dosage: 25 UG, QD (LEVOTHYROXINE ORAL 25 MCG TABLET PO QD)
     Route: 048
  11. LEVOTHYROXINE SODIUM [Suspect]
     Active Substance: LEVOTHYROXINE SODIUM
     Indication: Product used for unknown indication
     Dosage: 50 UG, QD (LEVOTHYROXINE ORAL 50 MCG TABLET 1 CAPSULE ORALLY EVERY DAY.)
     Route: 048
  12. VITAMINS [Suspect]
     Active Substance: VITAMINS
     Indication: Product used for unknown indication
     Dosage: UNK, QD (MULTIVITAMINS ORAL TABLET PO QD,)
     Route: 048
  13. VERAPAMIL [Suspect]
     Active Substance: VERAPAMIL HYDROCHLORIDE
     Indication: Product used for unknown indication
     Dosage: 180 MG, QD (VERAPAMIL ORAL ER TAB 180 MG TABLET EXTENDED RELEASE PO QD)
     Route: 048
  14. VITAMIN B COMPLEX [Suspect]
     Active Substance: CYANOCOBALAMIN\DEXPANTHENOL\NIACINAMIDE\PYRIDOXINE HYDROCHLORIDE\RIBOFLAVIN 5^-PHOSPHATE SODIUM\THIA
     Indication: Product used for unknown indication
     Dosage: VITAMIN B COMPLEX ORAL CAPSULE PO QD,
     Route: 048
  15. XARELTO [Suspect]
     Active Substance: RIVAROXABAN
     Indication: Product used for unknown indication
     Dosage: 20 MG, QD, (XARELTO (RIVAROXABAN ORAL) 20 MG TABLET PO QD)
     Route: 048

REACTIONS (29)
  - Invasive breast carcinoma [Unknown]
  - Hormone receptor positive breast cancer [Unknown]
  - Bone cancer metastatic [Unknown]
  - Atrial fibrillation [Unknown]
  - Adenocarcinoma gastric [Unknown]
  - Dyspnoea [Unknown]
  - Metastases to spine [Unknown]
  - Neutropenia [Unknown]
  - Hypoaesthesia [Unknown]
  - Breast mass [Unknown]
  - Nasopharyngitis [Unknown]
  - Oral pain [Unknown]
  - Decreased appetite [Unknown]
  - Immune system disorder [Unknown]
  - Memory impairment [Unknown]
  - Pain in extremity [Unknown]
  - Cough [Unknown]
  - Depression [Unknown]
  - Constipation [Unknown]
  - White blood cell count decreased [Unknown]
  - Alopecia [Unknown]
  - Pain [Unknown]
  - Anxiety [Unknown]
  - Arthralgia [Unknown]
  - Myalgia [Unknown]
  - Fatigue [Unknown]
  - Diarrhoea [Unknown]
  - Blood pressure systolic increased [Unknown]
  - Nausea [Unknown]
